FAERS Safety Report 7398861-X (Version None)
Quarter: 2011Q2

REPORT INFORMATION
  Report Type: 
  Country: None (occurrence: None)
  Receive Date: 20110407
  Receipt Date: 20110323
  Transmission Date: 20111010
  Serious: Yes (Hospitalization)
  Sender: FDA-Public Use
  Company Number: IN-CELGENEUS-078-20785-11032715

PATIENT
  Age: 65 Year
  Sex: Male

DRUGS (8)
  1. RIFAMPICIN [Concomitant]
     Dosage: 20 MILLIGRAM
     Route: 065
  2. PREDNISONE [Concomitant]
     Dosage: 60 MILLIGRAM
     Route: 065
  3. RIFAMPICIN [Concomitant]
     Dosage: 20 MILLIGRAM
     Route: 065
  4. THALIDOMIDE [Suspect]
     Route: 048
  5. CLOFAZIMINE [Concomitant]
     Dosage: 300 MILLIGRAM
     Route: 065
  6. PREDNISONE [Concomitant]
     Dosage: 40 MILLIGRAM
     Route: 065
  7. PREDNISONE [Concomitant]
     Dosage: 60 MILLIGRAM
     Route: 065
  8. CLOFAZIMINE [Concomitant]
     Dosage: 300 MILLIGRAM
     Route: 065

REACTIONS (13)
  - LEUKOCYTOSIS [None]
  - PYREXIA [None]
  - TYPE 2 LEPRA REACTION [None]
  - SKIN ULCER [None]
  - ACID FAST BACILLI INFECTION [None]
  - ANAEMIA [None]
  - OEDEMA PERIPHERAL [None]
  - ULNAR NEURITIS [None]
  - PANNICULITIS LOBULAR [None]
  - VASCULITIS NECROTISING [None]
  - SKIN NECROSIS [None]
  - NEUTROPHILIA [None]
  - MALAISE [None]
